FAERS Safety Report 20380630 (Version 1)
Quarter: 2022Q1

REPORT INFORMATION
  Report Type: Spontaneous
  Country: JP (occurrence: JP)
  Receive Date: 20220127
  Receipt Date: 20220127
  Transmission Date: 20220424
  Serious: Yes (Hospitalization, Other)
  Sender: FDA-Public Use
  Company Number: JP-SUN PHARMACEUTICAL INDUSTRIES LTD-2022RR-324568

PATIENT
  Age: 49 Year
  Sex: Male

DRUGS (8)
  1. OLANZAPINE [Suspect]
     Active Substance: OLANZAPINE
     Indication: Schizophrenia
     Dosage: 20 MILLIGRAM, DAILY
     Route: 065
  2. QUETIAPINE [Suspect]
     Active Substance: QUETIAPINE
     Indication: Schizophrenia
     Dosage: 600 MILLIGRAM, DAILY
     Route: 065
  3. ARIPIPRAZOLE [Suspect]
     Active Substance: ARIPIPRAZOLE
     Indication: Schizophrenia
     Dosage: 30 MILLIGRAM, DAILY
     Route: 065
  4. CLOZAPINE [Suspect]
     Active Substance: CLOZAPINE
     Indication: Schizophrenia
     Dosage: 200 MILLIGRAM, DAILY
     Route: 065
  5. CLOZAPINE [Suspect]
     Active Substance: CLOZAPINE
     Dosage: 425 MILLIGRAM, DAILY
     Route: 065
  6. CLOZAPINE [Suspect]
     Active Substance: CLOZAPINE
     Dosage: 400 MILLIGRAM, DAILY
     Route: 065
  7. THIOPENTAL SODIUM [Concomitant]
     Active Substance: THIOPENTAL SODIUM
     Indication: Hypotonia
     Dosage: 4.5 MILLIGRAM/KILOGRAM, UNK
     Route: 065
  8. SUCCINYLCHOLINE [Concomitant]
     Active Substance: SUCCINYLCHOLINE
     Indication: Hypotonia
     Dosage: 1 MILLIGRAM/KILOGRAM, UNK
     Route: 065

REACTIONS (5)
  - Schizophrenia [Unknown]
  - Disease recurrence [Unknown]
  - Femoral neck fracture [Unknown]
  - Dizziness [Unknown]
  - Dysarthria [Unknown]
